FAERS Safety Report 4692911-7 (Version None)
Quarter: 2005Q2

REPORT INFORMATION
  Report Type: 
  Country: None (occurrence: None)
  Receive Date: 20050615
  Receipt Date: 20050606
  Transmission Date: 20051028
  Serious: Yes (Hospitalization, Other)
  Sender: FDA-Public Use
  Company Number: 2005-05-1996

PATIENT
  Age: 46 Year
  Sex: Male
  Weight: 103 kg

DRUGS (9)
  1. GENTAMICIN [Suspect]
     Indication: ENDOCARDITIS
     Dosage: SEE IMAGE
     Dates: start: 20040301, end: 20040401
  2. GENTAMICIN [Suspect]
     Indication: ENDOCARDITIS
     Dosage: SEE IMAGE
     Dates: start: 20040418, end: 20040421
  3. VANCOMYCIN [Suspect]
     Indication: ENDOCARDITIS
     Dates: start: 20040301, end: 20040421
  4. ACYCLOVIR [Concomitant]
  5. SYMBICORT (BUDESONIDE/FORMOTEROL) [Concomitant]
  6. FUROSEMIDE [Concomitant]
  7. ZINACEF [Concomitant]
  8. ALOPAM [Concomitant]
  9. FLUOXETINE [Concomitant]

REACTIONS (25)
  - ANXIETY [None]
  - AORTIC VALVE REPLACEMENT [None]
  - ASTHENIA [None]
  - BLOOD CULTURE POSITIVE [None]
  - CONFUSIONAL STATE [None]
  - DERMATITIS ALLERGIC [None]
  - DIALYSIS [None]
  - DIFFICULTY IN WALKING [None]
  - EMOTIONAL DISTRESS [None]
  - EOSINOPHIL COUNT INCREASED [None]
  - EXANTHEM [None]
  - HALLUCINATION [None]
  - HYPERSENSITIVITY [None]
  - LABORATORY TEST ABNORMAL [None]
  - LUMBAR PUNCTURE ABNORMAL [None]
  - MOOD DISORDER DUE TO A GENERAL MEDICAL CONDITION [None]
  - MYELITIS [None]
  - NEPHRITIS INTERSTITIAL [None]
  - NEPHROPATHY TOXIC [None]
  - PSEUDOMONAS INFECTION [None]
  - PYREXIA [None]
  - QUADRIPLEGIA [None]
  - RASH GENERALISED [None]
  - RENAL IMPAIRMENT [None]
  - SEPTIC EMBOLUS [None]
